FAERS Safety Report 9237571 (Version 1)
Quarter: 2013Q2

REPORT INFORMATION
  Report Type: Spontaneous
  Country: US (occurrence: US)
  Receive Date: 20130418
  Receipt Date: 20130418
  Transmission Date: 20140414
  Serious: Yes (Hospitalization, Other)
  Sender: FDA-Public Use
  Company Number: US-AMGEN-USASP2013025117

PATIENT
  Age: 70 Year
  Sex: Female

DRUGS (12)
  1. PROLIA [Suspect]
     Indication: OSTEOPOROSIS
     Dosage: UNK
     Dates: start: 201203
  2. DITROPAN XL [Concomitant]
     Dosage: 5 MG, QD
  3. TRIBENZOR [Concomitant]
     Dosage: 40 MG, QD
  4. PROTONIX [Concomitant]
     Dosage: 40 MG, QD
  5. BABY ASPIRIN [Concomitant]
     Dosage: 81 MG, UNK
  6. IRON [Concomitant]
     Dosage: UNK UNK, QD
  7. VITAMIN D /00107901/ [Concomitant]
     Dosage: UNK UNK, QD
  8. TOPROL [Concomitant]
     Dosage: 25 MG, QD
  9. MAGNESIUM [Concomitant]
     Dosage: 250 MG, QD
  10. SERTRALINE [Concomitant]
     Dosage: 100 MG, QD
  11. ATORVASTATIN [Concomitant]
     Dosage: 10 MG, QD
  12. LORTAB                             /00607101/ [Concomitant]
     Dosage: UNK UNK, AS NECESSARY

REACTIONS (6)
  - Fall [Unknown]
  - Pain [Unknown]
  - Joint dislocation [Unknown]
  - Mobility decreased [Unknown]
  - Walking aid user [Unknown]
  - Joint crepitation [Unknown]
